FAERS Safety Report 8181881-5 (Version None)
Quarter: 2012Q1

REPORT INFORMATION
  Report Type: 
  Country: None (occurrence: None)
  Receive Date: 20120302
  Receipt Date: 20120222
  Transmission Date: 20120608
  Serious: Yes (Other)
  Sender: FDA-Public Use
  Company Number: CA-ROCHE-1043078

PATIENT
  Sex: Female
  Weight: 49.032 kg

DRUGS (5)
  1. PREDNISONE TAB [Concomitant]
  2. ACETAMINOPHEN [Concomitant]
  3. MABTHERA [Suspect]
     Indication: IDIOPATHIC THROMBOCYTOPENIC PURPURA
     Route: 042
     Dates: start: 20120118
  4. VITAMIN D [Concomitant]
  5. CALCIUM [Concomitant]

REACTIONS (1)
  - PLATELET COUNT DECREASED [None]
